FAERS Safety Report 4400315-7 (Version None)
Quarter: 2004Q2

REPORT INFORMATION
  Report Type: 
  Country: None (occurrence: None)
  Receive Date: 20040618
  Receipt Date: 20040227
  Transmission Date: 20050107
  Serious: No
  Sender: FDA-Public Use
  Company Number: US-JNJFOC-20040402836

PATIENT
  Age: 52 Year
  Sex: Female
  Weight: 62.1428 kg

DRUGS (5)
  1. ORTHO EVRA [Suspect]
     Indication: CONTRACEPTION
     Dosage: 1 DOSE(S), 3 IN 4 WEEK, TRANSDERMAL
     Route: 062
     Dates: start: 20020601
  2. MULTIVITAMIN [Concomitant]
  3. Q-GEL PLUS (MULTIVITAMIN AND MINERAL SUPPLEMENT) [Concomitant]
  4. DIMPLEX (MULTIVITAMIN AND MINERAL SUPPLEMENT) [Concomitant]
  5. GYMNEMA SYLVESTRE (MULTIVITAMIN AND MINERAL SUPPLEMENT) [Concomitant]

REACTIONS (2)
  - ABDOMINAL DISTENSION [None]
  - WEIGHT INCREASED [None]
